FAERS Safety Report 4462494-5 (Version None)
Quarter: 2004Q3

REPORT INFORMATION
  Report Type: 
  Country: None (occurrence: None)
  Receive Date: 20040924
  Receipt Date: 20040913
  Transmission Date: 20050211
  Serious: Yes (Other)
  Sender: FDA-Public Use
  Company Number: 2004RL000105

PATIENT
  Sex: Female

DRUGS (1)
  1. DYNACIRC CR (ISRADIPINE CR) [Suspect]
     Dosage: 5 MG; QD

REACTIONS (4)
  - HEADACHE [None]
  - HYPERTENSION [None]
  - OEDEMA [None]
  - RENAL FAILURE [None]
